FAERS Safety Report 9172870 (Version 1)
Quarter: 2013Q1

REPORT INFORMATION
  Report Type: Report from Study
  Country: PL (occurrence: PL)
  Receive Date: 20130319
  Receipt Date: 20130319
  Transmission Date: 20140127
  Serious: No
  Sender: FDA-Public Use
  Company Number: PL-JNJFOC-20110200374

PATIENT
  Age: 55 Year
  Sex: Female
  Weight: 73.2 kg

DRUGS (5)
  1. GOLIMUMAB [Suspect]
     Indication: RHEUMATOID ARTHRITIS
     Route: 042
     Dates: start: 20100527
  2. GOLIMUMAB [Suspect]
     Indication: RHEUMATOID ARTHRITIS
     Route: 042
     Dates: start: 20101202
  3. GOLIMUMAB [Suspect]
     Indication: RHEUMATOID ARTHRITIS
     Route: 042
     Dates: start: 20101110
  4. ACIDUM FOLICUM [Concomitant]
     Indication: VITAMIN SUPPLEMENTATION
     Route: 048
     Dates: start: 2007
  5. ZYRTEC [Concomitant]
     Route: 048
     Dates: start: 20100722

REACTIONS (1)
  - Basal cell carcinoma [Recovered/Resolved]
